FAERS Safety Report 14744824 (Version 3)
Quarter: 2020Q4

REPORT INFORMATION
  Report Type: Other
  Country: JP (occurrence: JP)
  Receive Date: 20180411
  Receipt Date: 20201202
  Transmission Date: 20210113
  Serious: Yes (Other)
  Sender: FDA-Public Use
  Company Number: JP-ROCHE-2102460

PATIENT
  Age: 5 Year
  Sex: Female
  Weight: 26 kg

DRUGS (14)
  1. ACETAMINOPHEN. [Concomitant]
     Active Substance: ACETAMINOPHEN
     Route: 048
     Dates: start: 20160912, end: 20160912
  2. PERIACTIN [Concomitant]
     Active Substance: CYPROHEPTADINE HYDROCHLORIDE
     Route: 048
     Dates: start: 20160307, end: 20160307
  3. KIPRES [Concomitant]
     Active Substance: MONTELUKAST SODIUM
     Route: 048
     Dates: start: 20161121, end: 20170102
  4. RITUXIMAB. [Suspect]
     Active Substance: RITUXIMAB
     Route: 041
     Dates: start: 20160912, end: 20160912
  5. RITUXIMAB. [Suspect]
     Active Substance: RITUXIMAB
     Route: 041
     Dates: start: 20160606, end: 20160606
  6. ACETAMINOPHEN. [Concomitant]
     Active Substance: ACETAMINOPHEN
     Indication: PREMEDICATION
     Route: 048
     Dates: start: 20160307, end: 20160307
  7. PERIACTIN [Concomitant]
     Active Substance: CYPROHEPTADINE HYDROCHLORIDE
     Route: 048
     Dates: start: 20161226, end: 20161226
  8. DAIPHEN [Concomitant]
     Active Substance: SULFAMETHOXAZOLE\TRIMETHOPRIM
     Route: 048
  9. RITUXIMAB. [Suspect]
     Active Substance: RITUXIMAB
     Indication: NEPHROTIC SYNDROME
     Route: 041
     Dates: start: 20160307, end: 20160307
  10. RITUXIMAB. [Suspect]
     Active Substance: RITUXIMAB
     Route: 041
     Dates: start: 20161226, end: 20161226
  11. ACETAMINOPHEN. [Concomitant]
     Active Substance: ACETAMINOPHEN
     Route: 048
     Dates: start: 20161226, end: 20161226
  12. PREDONINE [Concomitant]
     Active Substance: PREDNISOLONE
     Route: 042
     Dates: start: 20161226, end: 20161226
  13. PERIACTIN [Concomitant]
     Active Substance: CYPROHEPTADINE HYDROCHLORIDE
     Route: 048
     Dates: start: 20160912, end: 20160912
  14. PREDONINE [Concomitant]
     Active Substance: PREDNISOLONE
     Route: 042
     Dates: start: 20160912, end: 20160912

REACTIONS (4)
  - Blood immunoglobulin A decreased [Not Recovered/Not Resolved]
  - Blood immunoglobulin M decreased [Not Recovered/Not Resolved]
  - Blood immunoglobulin G decreased [Recovered/Resolved]
  - Otitis media chronic [Not Recovered/Not Resolved]

NARRATIVE: CASE EVENT DATE: 201701
